FAERS Safety Report 20658725 (Version 1)
Quarter: 2022Q1

REPORT INFORMATION
  Report Type: Spontaneous
  Country: DE (occurrence: DE)
  Receive Date: 20220331
  Receipt Date: 20220331
  Transmission Date: 20220423
  Serious: Yes (Hospitalization, Congenital Anomaly, Other)
  Sender: FDA-Public Use
  Company Number: DE-ABBVIE-22K-062-4339509-00

PATIENT
  Sex: Male
  Weight: 2.4 kg

DRUGS (2)
  1. VALPROATE SODIUM [Suspect]
     Active Substance: VALPROATE SODIUM
     Indication: Maternal exposure timing unspecified
     Route: 064
  2. LAMOTRIGINE [Suspect]
     Active Substance: LAMOTRIGINE
     Indication: Maternal exposure timing unspecified
     Route: 064

REACTIONS (3)
  - Coarctation of the aorta [Unknown]
  - Patent ductus arteriosus [Recovered/Resolved with Sequelae]
  - Microcephaly [Not Recovered/Not Resolved]
